FAERS Safety Report 13978458 (Version 1)
Quarter: 2017Q3

REPORT INFORMATION
  Report Type: Spontaneous
  Country: FR (occurrence: FR)
  Receive Date: 20170915
  Receipt Date: 20170915
  Transmission Date: 20171128
  Serious: Yes (Other)
  Sender: FDA-Public Use
  Company Number: FR-MERCK KGAA-2026446

PATIENT
  Age: 45 Year
  Sex: Female
  Weight: 118 kg

DRUGS (1)
  1. NOVOTHYROX [Suspect]
     Active Substance: LEVOTHYROXINE SODIUM
     Indication: THYROIDECTOMY
     Route: 048
     Dates: start: 20170202

REACTIONS (5)
  - Migraine [Unknown]
  - Pain in extremity [Unknown]
  - Fatigue [Unknown]
  - Tachycardia [Unknown]
  - Anxiety [Unknown]

NARRATIVE: CASE EVENT DATE: 20170714
